APPROVED DRUG PRODUCT: OLMESARTAN MEDOXOMIL, AMLODIPINE AND HYDROCHLOROTHIAZIDE
Active Ingredient: AMLODIPINE BESYLATE; HYDROCHLOROTHIAZIDE; OLMESARTAN MEDOXOMIL
Strength: EQ 5MG BASE;25MG;40MG
Dosage Form/Route: TABLET;ORAL
Application: A209242 | Product #003 | TE Code: AB
Applicant: HETERO LABS LTD UNIT V
Approved: Oct 6, 2025 | RLD: No | RS: No | Type: RX